FAERS Safety Report 17465899 (Version 4)
Quarter: 2020Q2

REPORT INFORMATION
  Report Type: Report from Study
  Country: MX (occurrence: MX)
  Receive Date: 20200227
  Receipt Date: 20200619
  Transmission Date: 20200713
  Serious: Yes (Death, Hospitalization)
  Sender: FDA-Public Use
  Company Number: MX-ROCHE-2549822

PATIENT
  Age: 57 Year
  Sex: Male
  Weight: 64 kg

DRUGS (5)
  1. METFORMIN [Concomitant]
     Active Substance: METFORMIN HYDROCHLORIDE
     Route: 065
  2. VILDAGLIPTINE [Concomitant]
     Active Substance: VILDAGLIPTIN
  3. OMEPRAZOLE. [Concomitant]
     Active Substance: OMEPRAZOLE
  4. ATEZOLIZUMAB. [Suspect]
     Active Substance: ATEZOLIZUMAB
     Indication: HEPATOCELLULAR CARCINOMA
     Route: 041
     Dates: start: 20191114, end: 20200208
  5. CABOZANTINIB [Suspect]
     Active Substance: CABOZANTINIB
     Indication: HEPATOCELLULAR CARCINOMA
     Dosage: ON 06/FEB/2020: MOST RECENT DOSE PRIOR TO THE ONSET OF COLITIS SECONDARY TO IMMUNOTHERAPY.
     Route: 048
     Dates: start: 20191114, end: 20200208

REACTIONS (4)
  - Immune-mediated enterocolitis [Recovered/Resolved]
  - Upper gastrointestinal haemorrhage [Not Recovered/Not Resolved]
  - Oesophageal varices haemorrhage [Recovered/Resolved with Sequelae]
  - Hepatic encephalopathy [Fatal]

NARRATIVE: CASE EVENT DATE: 20200122
